FAERS Safety Report 18781551 (Version 1)
Quarter: 2021Q1

REPORT INFORMATION
  Report Type: Spontaneous
  Country: US (occurrence: US)
  Receive Date: 20210125
  Receipt Date: 20210125
  Transmission Date: 20210419
  Serious: No
  Sender: FDA-Public Use
  Company Number: None

PATIENT
  Age: 64 Year
  Sex: Female
  Weight: 49 kg

DRUGS (4)
  1. LACTATED RINGERS SOLUTION [Concomitant]
     Active Substance: CALCIUM CHLORIDE\POTASSIUM CHLORIDE\SODIUM CHLORIDE\SODIUM LACTATE
     Dates: start: 20210105, end: 20210105
  2. 2% CHLORHEXIDINE GLUCONATE AND 70% ISOPROPIL ALCOHOL [Suspect]
     Active Substance: CHLORHEXIDINE GLUCONATE\ISOPROPYL ALCOHOL
     Indication: LAPAROSCOPY
     Dosage: ?          OTHER FREQUENCY:ONCE;?
     Route: 061
     Dates: start: 20210105, end: 20210105
  3. FENTANYL. [Concomitant]
     Active Substance: FENTANYL
     Dates: start: 20210105, end: 20210105
  4. CEFOXITIN [Concomitant]
     Active Substance: CEFOXITIN SODIUM
     Dates: start: 20210105, end: 20210105

REACTIONS (1)
  - Urticaria [None]

NARRATIVE: CASE EVENT DATE: 20210105
